FAERS Safety Report 9836694 (Version 1)
Quarter: 2013Q4

REPORT INFORMATION
  Report Type: Spontaneous
  Country: US (occurrence: None)
  Receive Date: 20131120
  Receipt Date: 20131120
  Transmission Date: 20140711
  Serious: No
  Sender: FDA-Public Use
  Company Number: 1000049031

PATIENT
  Age: 46 Year
  Sex: Female

DRUGS (5)
  1. VIIBRYD (VILAZODONE HYDROCHLORIDE) (40 MILLIGRAM, TABLETS) [Suspect]
     Indication: DEPRESSION
     Dosage: 40MG (40MG, 1 IN 1D) ORAL
     Route: 048
     Dates: start: 201303, end: 201306
  2. ESTRACE (ESTRADIOL)(ESTRADIOL) [Concomitant]
  3. BENTAL (DICYCLOVERINE HYDROCHLORIDE) (DICYCLOVERINE HYDROCHLORIDE) [Concomitant]
  4. ELAVIL (AMITRIPTYLINE) (AMITRIPYTYLINE) [Concomitant]
  5. DEXILANT (DEXLANSOPRAZOLE) (DEXLANSOPRAZOLE) [Concomitant]

REACTIONS (1)
  - Weight increased [None]
